FAERS Safety Report 18925232 (Version 2)
Quarter: 2023Q4

REPORT INFORMATION
  Report Type: Spontaneous
  Country: FR (occurrence: FR)
  Receive Date: 20210223
  Receipt Date: 20231023
  Transmission Date: 20240110
  Serious: Yes (Death, Hospitalization, Other)
  Sender: FDA-Public Use
  Company Number: None

PATIENT
  Age: 77 Year
  Sex: Male
  Weight: 95 kg

DRUGS (3)
  1. DILTIAZEM HYDROCHLORIDE [Suspect]
     Active Substance: DILTIAZEM HYDROCHLORIDE
     Indication: Product used for unknown indication
     Dosage: 1 DF
     Route: 048
  2. PLAVIX [Suspect]
     Active Substance: CLOPIDOGREL BISULFATE
     Indication: Product used for unknown indication
     Dosage: 1 DF
     Route: 048
  3. COLCHICINE [Suspect]
     Active Substance: COLCHICINE
     Indication: Gouty arthritis
     Dosage: 1 DF
     Route: 048

REACTIONS (2)
  - Anaemia [Fatal]
  - Acute abdomen [Fatal]

NARRATIVE: CASE EVENT DATE: 20210208
